FAERS Safety Report 9188569 (Version 5)
Quarter: 2013Q2

REPORT INFORMATION
  Report Type: Report from Study
  Country: US (occurrence: US)
  Receive Date: 20130325
  Receipt Date: 20130604
  Transmission Date: 20140414
  Serious: Yes (Death, Hospitalization, Other)
  Sender: FDA-Public Use
  Company Number: PHEH2013US006429

PATIENT
  Age: 49 Year
  Sex: Female
  Weight: 75.74 kg

DRUGS (29)
  1. GILENYA [Suspect]
     Indication: MULTIPLE SCLEROSIS
     Dosage: 0.5 MG, QD
     Route: 048
     Dates: start: 20130227, end: 20130307
  2. NEURONTIN [Concomitant]
     Dosage: 300 MG, TID
  3. NEURONTIN [Concomitant]
     Dosage: 600 UNK, UNK
  4. PERCOCET [Concomitant]
     Dosage: OXYCODONE HYDROCHLORIDE: 10 MG, PARACETAMOL: 325 MG, QID
     Route: 048
  5. FLEXERIL [Concomitant]
  6. ZOLOFT [Concomitant]
     Dosage: 100 MG, DAILY
     Route: 048
  7. ZOFRAN [Concomitant]
     Dosage: 8 MG, PRN
  8. ZOFRAN [Concomitant]
     Dosage: 4 MG, UNK
     Route: 042
  9. AMBIEN [Concomitant]
     Dosage: 10 MG, PRN
  10. XANAX [Concomitant]
     Dosage: 0.25 MG, BID
  11. LOMOTIL [Concomitant]
  12. GAMUNEX C [Concomitant]
  13. NEXIAM [Concomitant]
     Dosage: 200 MG, DAILY
  14. NEXIAM [Concomitant]
     Dosage: 20 UNK, UNK
  15. FOLAC [Concomitant]
  16. B 12 [Concomitant]
     Dosage: 2500 MG, DAILY
     Route: 060
  17. VIT D [Concomitant]
     Dosage: 5000 IU, QW
  18. VESICARE [Concomitant]
     Dosage: 5 MG, DAILY
     Route: 048
  19. SUCRALFATE [Concomitant]
     Dosage: 1 G, QD
     Route: 048
  20. NORCO [Concomitant]
  21. LYRICA [Concomitant]
  22. DILAUDID [Concomitant]
     Dosage: 1 MG, UNK
  23. DILAUDID [Concomitant]
     Dosage: 0.5 UNK, UNK
  24. PHENERGAN [Concomitant]
     Dosage: 12.5 MG, UNK
  25. DIPHENOXYLATE/ATROPINE [Concomitant]
     Route: 048
  26. TORADOL [Concomitant]
     Dosage: 30 MG, UNK
  27. SOLU-MEDROL [Concomitant]
     Dosage: 125 MG, UNK
  28. MEDROL [Concomitant]
  29. HEPARIN FLUSH [Concomitant]
     Dosage: 300 U, UNK

REACTIONS (24)
  - Death [Fatal]
  - Blood pressure fluctuation [Unknown]
  - Generalised oedema [Unknown]
  - Constipation [Unknown]
  - Headache [Recovering/Resolving]
  - Blood pressure increased [Unknown]
  - Ligament sprain [Unknown]
  - Fall [Unknown]
  - Eyelid ptosis [Unknown]
  - Neck pain [Unknown]
  - Photophobia [Unknown]
  - Sluggishness [Unknown]
  - Discomfort [Unknown]
  - Balance disorder [Unknown]
  - Disturbance in attention [Unknown]
  - Fatigue [Unknown]
  - Pain [Unknown]
  - Nausea [Recovering/Resolving]
  - Anxiety [Unknown]
  - Visual impairment [Unknown]
  - Hepatic enzyme increased [Unknown]
  - Migraine [Unknown]
  - Vision blurred [Unknown]
  - Dizziness [Unknown]
